FAERS Safety Report 9416279 (Version 1)
Quarter: 2013Q3

REPORT INFORMATION
  Report Type: Spontaneous
  Country: SI (occurrence: SI)
  Receive Date: 20130718
  Receipt Date: 20130718
  Transmission Date: 20140515
  Serious: Yes (Hospitalization)
  Sender: FDA-Public Use
  Company Number: 2013P1011979

PATIENT
  Age: 41 Year
  Sex: Female

DRUGS (4)
  1. LITHIUM [Suspect]
     Indication: DEPRESSION
     Route: 048
  2. LITHIUM [Suspect]
     Indication: MENTAL DISORDER DUE TO A GENERAL MEDICAL CONDITION
     Route: 048
  3. VENLAFAXINE [Suspect]
     Indication: DEPRESSION
     Route: 048
  4. VENLAFAXINE [Suspect]
     Route: 048

REACTIONS (20)
  - Suicide attempt [None]
  - Incorrect dose administered [None]
  - Vomiting [None]
  - White blood cell count increased [None]
  - Electrocardiogram QT prolonged [None]
  - Diarrhoea [None]
  - Tremor [None]
  - Confusional state [None]
  - Disorientation [None]
  - Muscle contractions involuntary [None]
  - Restlessness [None]
  - Tachypnoea [None]
  - Blood pressure systolic increased [None]
  - Myoglobin blood increased [None]
  - Toxicity to various agents [None]
  - Neurological symptom [None]
  - Continuous haemodiafiltration [None]
  - Dysarthria [None]
  - Hypothyroidism [None]
  - No therapeutic response [None]
